FAERS Safety Report 9325979 (Version 1)
Quarter: 2013Q2

REPORT INFORMATION
  Report Type: Spontaneous
  Country: KR (occurrence: KR)
  Receive Date: 20130604
  Receipt Date: 20130604
  Transmission Date: 20140414
  Serious: Yes (Death, Hospitalization, Other)
  Sender: FDA-Public Use
  Company Number: KR-BAYER-2013-065296

PATIENT
  Age: 55 Year
  Sex: Male

DRUGS (1)
  1. NEXAVAR [Suspect]
     Indication: HEPATIC CANCER
     Dosage: DAILY DOSE 800 MG
     Dates: start: 20120127

REACTIONS (10)
  - Hepatic failure [Fatal]
  - Hepatocellular carcinoma [Fatal]
  - Decreased appetite [Fatal]
  - Asthenia [Fatal]
  - Abdominal pain [Fatal]
  - Tumour necrosis [None]
  - Liver abscess [Recovering/Resolving]
  - Pyrexia [Recovering/Resolving]
  - Tumour thrombosis [None]
  - Portal vein thrombosis [None]
